FAERS Safety Report 18249318 (Version 1)
Quarter: 2020Q3

REPORT INFORMATION
  Report Type: Spontaneous
  Country: GB (occurrence: GB)
  Receive Date: 20200909
  Receipt Date: 20200909
  Transmission Date: 20201103
  Serious: Yes (Other)
  Sender: FDA-Public Use
  Company Number: GB-ALLERGAN-2034070US

PATIENT
  Sex: Female
  Weight: 66.67 kg

DRUGS (2)
  1. MOMETASONE [Concomitant]
     Active Substance: MOMETASONE
  2. PRED FORTE [Suspect]
     Active Substance: PREDNISOLONE ACETATE
     Indication: INFLAMMATION
     Dosage: 1 DROP EVERY 2 HOURS FOR A WEEK, 6 TIMES A DAY FOR A WEEK, 5 TIMES A DAY FOR A WEEK ETC
     Route: 047

REACTIONS (1)
  - Abdominal discomfort [Not Recovered/Not Resolved]

NARRATIVE: CASE EVENT DATE: 20200815
